FAERS Safety Report 7682724-6 (Version None)
Quarter: 2011Q3

REPORT INFORMATION
  Report Type: 
  Country: None (occurrence: None)
  Receive Date: 20110810
  Receipt Date: 20110728
  Transmission Date: 20111222
  Serious: Yes (Other)
  Sender: FDA-Public Use
  Company Number: 2011SP035668

PATIENT
  Age: 41 Year
  Sex: Female

DRUGS (2)
  1. BETAMETHASONE SODIUM PHOSPHATE [Suspect]
     Indication: INFLAMMATION
     Dosage: QW
  2. BETAMETHASONE SODIUM PHOSPHATE [Suspect]
     Indication: POST PROCEDURAL COMPLICATION
     Dosage: QW

REACTIONS (3)
  - OFF LABEL USE [None]
  - CUSHING'S SYNDROME [None]
  - RENAL FAILURE [None]
